FAERS Safety Report 12769700 (Version 1)
Quarter: 2016Q3

REPORT INFORMATION
  Report Type: Spontaneous
  Country: US (occurrence: US)
  Receive Date: 20160922
  Receipt Date: 20160922
  Transmission Date: 20161109
  Serious: Yes (Hospitalization, Other)
  Sender: FDA-Public Use
  Company Number: US-AMGEN-USASP2016126343

PATIENT
  Age: 62 Year
  Sex: Male

DRUGS (2)
  1. IBRUTINIB [Concomitant]
     Active Substance: IBRUTINIB
     Dosage: UNK
     Dates: start: 201607
  2. KYPROLIS [Suspect]
     Active Substance: CARFILZOMIB
     Indication: PRODUCT USED FOR UNKNOWN INDICATION
     Dosage: UNK
     Route: 065
     Dates: start: 201607

REACTIONS (6)
  - Spinal compression fracture [Unknown]
  - Chills [Unknown]
  - Pyrexia [Unknown]
  - Headache [Unknown]
  - Paranasal sinus discomfort [Unknown]
  - Clavicle fracture [Unknown]

NARRATIVE: CASE EVENT DATE: 20160829
